FAERS Safety Report 17854521 (Version 1)
Quarter: 2020Q2

REPORT INFORMATION
  Report Type: Spontaneous
  Country: IT (occurrence: IT)
  Receive Date: 20200603
  Receipt Date: 20200603
  Transmission Date: 20200714
  Serious: Yes (Other)
  Sender: FDA-Public Use
  Company Number: IT-ACCORD-183935

PATIENT
  Age: 45 Year
  Sex: Female

DRUGS (12)
  1. TACROLIMUS. [Suspect]
     Active Substance: TACROLIMUS
     Indication: IMMUNOSUPPRESSANT DRUG THERAPY
     Route: 065
     Dates: start: 201503, end: 201604
  2. PREDNISONE. [Suspect]
     Active Substance: PREDNISONE
     Indication: IMMUNOSUPPRESSANT DRUG THERAPY
     Dosage: TAPERERD AND THEN STOPPED BEFORE JAN 2016
     Route: 065
     Dates: start: 201503
  3. RILPIVIRINE [Concomitant]
     Active Substance: RILPIVIRINE
     Indication: ANTIRETROVIRAL THERAPY
     Dosage: AS PART OF LAMIVUDINE/RALTEGRAVIR/RILPIVIRINE THERAPY
     Dates: start: 2015, end: 201503
  4. RILPIVIRINE [Concomitant]
     Active Substance: RILPIVIRINE
     Indication: ANTIRETROVIRAL THERAPY
     Dosage: AS PART OF RALTEGRAVIR/MARAVIROC/RILPIVIRINE  THERAPY
     Dates: start: 201503
  5. RALTEGRAVIR. [Concomitant]
     Active Substance: RALTEGRAVIR
     Indication: ANTIRETROVIRAL THERAPY
     Dosage: AS PART OF RALTEGRAVIR/MARAVIROC/RILPIVIRINE THERAPY
     Dates: start: 201503
  6. LEFLUNOMIDE. [Suspect]
     Active Substance: LEFLUNOMIDE
     Indication: BK VIRUS INFECTION
     Dosage: 40 MILLIGRAM DAILY
     Route: 065
  7. MARAVIROC [Concomitant]
     Active Substance: MARAVIROC
     Indication: HIV INFECTION
     Dosage: AS PART OF RALTEGRAVIR/MARAVIROC/RILPIVIRINE THERAPY
     Route: 065
  8. LAMIVUDINE. [Concomitant]
     Active Substance: LAMIVUDINE
     Indication: HIV INFECTION
     Dosage: AS PART OF LAMIVUDINE/RALTEGRAVIR/RILPIVIRINE  THERAPY
     Route: 065
     Dates: start: 2015, end: 201503
  9. VALGANCICLOVIR/VALGANCICLOVIR HYDROCHLORIDE [Concomitant]
     Active Substance: VALGANCICLOVIR
     Indication: ANTIVIRAL PROPHYLAXIS
     Route: 065
     Dates: start: 2015
  10. RALTEGRAVIR. [Concomitant]
     Active Substance: RALTEGRAVIR
     Indication: ANTIRETROVIRAL THERAPY
     Dosage: AS PART OF LAMIVUDINE/RALTEGRAVIR/RILPIVIRINE THERAPY
     Dates: start: 2015, end: 201503
  11. BASILIXIMAB [Suspect]
     Active Substance: BASILIXIMAB
     Indication: IMMUNOSUPPRESSANT DRUG THERAPY
     Route: 065
     Dates: start: 201503, end: 2015
  12. SULFAMETHOXAZOLE/TRIMETHOPRIM [Concomitant]
     Active Substance: SULFAMETHOXAZOLE\TRIMETHOPRIM
     Indication: ANTIFUNGAL PROPHYLAXIS
     Route: 065
     Dates: start: 2015

REACTIONS (5)
  - Polyomavirus-associated nephropathy [Recovered/Resolved]
  - Transplant dysfunction [Recovered/Resolved]
  - BK virus infection [Recovered/Resolved]
  - Tubulointerstitial nephritis [Recovering/Resolving]
  - Pancytopenia [Unknown]

NARRATIVE: CASE EVENT DATE: 2015
